FAERS Safety Report 10907694 (Version 1)
Quarter: 2015Q1

REPORT INFORMATION
  Report Type: Spontaneous
  Country: US (occurrence: None)
  Receive Date: 20150309
  Receipt Date: 20150309
  Transmission Date: 20150721
  Serious: Yes (Hospitalization)
  Sender: FDA-Public Use
  Company Number: None

PATIENT
  Age: 69 Year
  Sex: Male
  Weight: 120 kg

DRUGS (2)
  1. RITUXIMAB (MOAB C2B8 ANTI CD20, CHIMERIC) [Suspect]
     Active Substance: RITUXIMAB
     Dates: end: 20150211
  2. BENDAMUSTINE HYDROCHLORIDE [Suspect]
     Active Substance: BENDAMUSTINE HYDROCHLORIDE
     Dates: end: 20150213

REACTIONS (7)
  - Nausea [None]
  - Dizziness [None]
  - Blood pressure fluctuation [None]
  - Hypotension [None]
  - Dyspnoea [None]
  - Asthenia [None]
  - Dyspnoea exertional [None]

NARRATIVE: CASE EVENT DATE: 20150225
